FAERS Safety Report 23241646 (Version 2)
Quarter: 2024Q1

REPORT INFORMATION
  Report Type: Spontaneous
  Country: AU (occurrence: AU)
  Receive Date: 20231129
  Receipt Date: 20240130
  Transmission Date: 20240410
  Serious: Yes (Hospitalization)
  Sender: FDA-Public Use
  Company Number: AU-MYLANLABS-2023M1125254

PATIENT
  Age: 39 Year
  Sex: Female

DRUGS (1)
  1. CLOZARIL [Suspect]
     Active Substance: CLOZAPINE
     Indication: Schizophrenia
     Dosage: UNK
     Route: 048
     Dates: start: 20230930

REACTIONS (3)
  - Hospitalisation [Recovered/Resolved]
  - Leukocytosis [Unknown]
  - Neutrophilia [Unknown]

NARRATIVE: CASE EVENT DATE: 20240122
